FAERS Safety Report 4360565-5 (Version None)
Quarter: 2004Q2

REPORT INFORMATION
  Report Type: 
  Country: None (occurrence: None)
  Receive Date: 20040519
  Receipt Date: 20040420
  Transmission Date: 20050107
  Serious: Yes (Hospitalization, Other)
  Sender: FDA-Public Use
  Company Number: PHFR2004GB01876

PATIENT
  Age: 59 Year
  Sex: Female

DRUGS (2)
  1. CLOZARIL [Suspect]
     Indication: SCHIZOPHRENIA
     Dosage: 500MG
     Route: 048
     Dates: start: 19950727
  2. CLOZARIL [Suspect]
     Dosage: 300MG NOCTE

REACTIONS (3)
  - HAEMOGLOBIN DECREASED [None]
  - LIVER DISORDER [None]
  - RENAL DISORDER [None]
